FAERS Safety Report 8553689-X (Version None)
Quarter: 2012Q3

REPORT INFORMATION
  Report Type: 
  Country: None (occurrence: None)
  Receive Date: 20120731
  Receipt Date: 20120723
  Transmission Date: 20120928
  Serious: Yes (Life-Threatening, Hospitalization, Other)
  Sender: FDA-Public Use
  Company Number: US-009507513-1207USA010240

PATIENT

DRUGS (4)
  1. COPEGUS [Suspect]
     Route: 048
  2. JANUMET [Suspect]
     Route: 048
  3. PEGASYS [Suspect]
     Route: 058
  4. TELAPREVIR [Suspect]
     Route: 048

REACTIONS (9)
  - FACTOR V DEFICIENCY [None]
  - ANAEMIA [None]
  - MULTI-ORGAN FAILURE [None]
  - LACTIC ACIDOSIS [None]
  - RHABDOMYOLYSIS [None]
  - RENAL FAILURE [None]
  - THROMBOCYTOPENIA [None]
  - ESCHERICHIA TEST POSITIVE [None]
  - HEPATIC FAILURE [None]
